FAERS Safety Report 6062773-4 (Version None)
Quarter: 2009Q1

REPORT INFORMATION
  Report Type: 
  Country: None (occurrence: None)
  Receive Date: 20090203
  Receipt Date: 20090121
  Transmission Date: 20090719
  Serious: Yes (Death)
  Sender: FDA-Public Use
  Company Number: US-JNJFOC-20090105451

PATIENT
  Sex: Female
  Weight: 59.88 kg

DRUGS (10)
  1. FENTANYL-75 [Suspect]
     Indication: DRUG USE FOR UNKNOWN INDICATION
     Route: 065
  2. DILAUDID [Concomitant]
     Dosage: 0.06MG/L
  3. OXYCONTIN [Concomitant]
     Dosage: 1.5MG/L
  4. VALIUM [Concomitant]
     Dosage: 0.13MG/L
  5. MOTRIN [Concomitant]
  6. NUMORPHAN [Concomitant]
  7. GABEPENTIN [Concomitant]
  8. EFFEXOR [Concomitant]
  9. XANAX [Concomitant]
     Dosage: 0.03 MG/L
  10. ATROPINE [Concomitant]

REACTIONS (2)
  - DRUG LEVEL INCREASED [None]
  - INJURY [None]
